FAERS Safety Report 8836267 (Version 3)
Quarter: 2012Q4

REPORT INFORMATION
  Report Type: 
  Country: US (occurrence: US)
  Receive Date: 20121011
  Receipt Date: 20121206
  Transmission Date: 20130627
  Serious: Yes (Hospitalization, Other)
  Sender: FDA-Public Use
  Company Number: US-GENZYME-CLOF-1002329

PATIENT
  Age: 17 Year
  Sex: Male
  Weight: 60 kg

DRUGS (17)
  1. CLOLAR [Suspect]
     Indication: B PRECURSOR TYPE ACUTE LEUKAEMIA
     Dosage: 51 mg, qd (part 2 of consolidation)
     Route: 042
     Dates: start: 20120703, end: 20120707
  2. CYCLOPHOSPHAMIDE [Suspect]
     Indication: B PRECURSOR TYPE ACUTE LEUKAEMIA
     Dosage: 750 mg, qd (part 2 of consolidation)
     Route: 042
     Dates: start: 20120703, end: 20120707
  3. ETOPOSIDE [Suspect]
     Indication: B PRECURSOR TYPE ACUTE LEUKAEMIA
     Dosage: 170 mg, qd (part 2 of consolidation)
     Route: 042
     Dates: start: 20120703, end: 20120707
  4. VINCRISTINE [Concomitant]
     Indication: PRODUCT USED FOR UNKNOWN INDICATION
     Dosage: 1.5 mg/m2, on day 43, 50
     Route: 065
  5. PEG-ASPARAGINASE [Concomitant]
     Indication: PRODUCT USED FOR UNKNOWN INDICATION
     Dosage: 2500 iu/m2, on day 43
     Route: 065
  6. BACTRIM [Concomitant]
     Indication: PRODUCT USED FOR UNKNOWN INDICATION
     Dosage: 4 DF, 3x/w, (2 tablets in morning and 2 tablets in night)
     Route: 065
  7. OMEPRAZOLE [Concomitant]
     Indication: PRODUCT USED FOR UNKNOWN INDICATION
     Dosage: UNK
     Route: 048
  8. FIORICET [Concomitant]
     Indication: HEADACHE
     Dosage: 1 DF, tid (every 6 hours, prn)
     Route: 048
  9. ZOFRAN [Concomitant]
     Indication: NAUSEA
     Dosage: UNK (every 8 hours, prn)
     Route: 048
  10. ZOFRAN [Concomitant]
     Indication: VOMITING
  11. MIRALAX [Concomitant]
     Indication: CONSTIPATION
     Dosage: UNK (once a day, prn)
     Route: 048
  12. SENNA [Concomitant]
     Indication: CONSTIPATION
     Dosage: 2 DF, qd (once a day, prn)
  13. COLACE [Concomitant]
     Indication: PRODUCT USED FOR UNKNOWN INDICATION
     Dosage: UNK
     Route: 048
  14. SCOPOLAMINE [Concomitant]
     Indication: NAUSEA
     Dosage: UNK
     Route: 065
  15. SCOPOLAMINE [Concomitant]
     Indication: VOMITING
  16. COMPAZINE [Concomitant]
     Indication: NAUSEA
     Dosage: UNK, (every 8 hours)
     Route: 048
  17. COMPAZINE [Concomitant]
     Indication: VOMITING

REACTIONS (12)
  - Supraventricular tachycardia [Recovered/Resolved]
  - Lung neoplasm [Not Recovered/Not Resolved]
  - Febrile neutropenia [Recovered/Resolved]
  - Oral herpes [Recovered/Resolved]
  - Thrombocytopenia [Unknown]
  - Anaemia [Not Recovered/Not Resolved]
  - Urticaria [Recovered/Resolved]
  - Renal disorder [Not Recovered/Not Resolved]
  - Hot flush [Recovered/Resolved]
  - Vomiting [Recovered/Resolved]
  - Arthralgia [Recovered/Resolved]
  - Chills [Recovered/Resolved]
